FAERS Safety Report 19824440 (Version 1)
Quarter: 2021Q3

REPORT INFORMATION
  Report Type: Spontaneous
  Country: US (occurrence: US)
  Receive Date: 20210912
  Receipt Date: 20210912
  Transmission Date: 20211014
  Serious: No
  Sender: FDA-Public Use
  Company Number: None

PATIENT
  Age: 71 Year
  Sex: Male

DRUGS (2)
  1. TACROLIMUS 1MG [Suspect]
     Active Substance: TACROLIMUS
     Dosage: 3MG Q12H ORAL
     Route: 048
     Dates: start: 20210401
  2. TACROLIMUS 0.5MG [Suspect]
     Active Substance: TACROLIMUS
     Dosage: 1MG OR AS DIRECTED Q12H ORAL
     Route: 048
     Dates: start: 20210401

REACTIONS (3)
  - Hypomagnesaemia [None]
  - Tremor [None]
  - Weight decreased [None]

NARRATIVE: CASE EVENT DATE: 202106
